FAERS Safety Report 7886665-0 (Version None)
Quarter: 2011Q4

REPORT INFORMATION
  Report Type: 
  Country: None (occurrence: None)
  Receive Date: 20111102
  Receipt Date: 20110708
  Transmission Date: 20120403
  Serious: No
  Sender: FDA-Public Use
  Company Number: US-AMGEN-USASP2011034756

PATIENT
  Age: 47 Year
  Sex: Female

DRUGS (4)
  1. ORENCIA [Concomitant]
  2. METHOTREXATE [Concomitant]
     Dates: start: 20020101
  3. HUMIRA [Concomitant]
  4. ENBREL [Suspect]
     Indication: RHEUMATOID ARTHRITIS
     Dosage: 50 MG, QWK
     Dates: start: 20021211

REACTIONS (3)
  - BLOOD DISORDER [None]
  - THERAPEUTIC RESPONSE DECREASED [None]
  - RHEUMATOID ARTHRITIS [None]
